FAERS Safety Report 24200902 (Version 1)
Quarter: 2024Q3

REPORT INFORMATION
  Report Type: Spontaneous
  Country: NL (occurrence: NL)
  Receive Date: 20240812
  Receipt Date: 20240812
  Transmission Date: 20241016
  Serious: Yes (Life-Threatening)
  Sender: FRESENIUS KABI
  Company Number: None

PATIENT
  Age: 77 Year
  Sex: Female
  Weight: 71.7 kg

DRUGS (13)
  1. PEMETREXED [Suspect]
     Active Substance: PEMETREXED
     Indication: Non-small cell lung cancer stage IV
     Dosage: NOT KNOWN, PRACTITIONER IS PULMONOLOGIST AT ST JANSDAL
     Dates: start: 20240516, end: 20240627
  2. PEMBROLIZUMAB [Suspect]
     Active Substance: PEMBROLIZUMAB
     Indication: Non-small cell lung cancer stage IV
     Dosage: NOT KNOWN, PRACTITIONER IS PULMONOLOGIST AT ST JANSDAL
     Dates: start: 20240516, end: 20240627
  3. CISPLATIN [Suspect]
     Active Substance: CISPLATIN
     Indication: Non-small cell lung cancer stage IV
     Dosage: TREATMENT BY PULMONOLOGIST AT ST JANSDAL
     Dates: start: 20240516, end: 20240627
  4. LISINOPRIL [Concomitant]
     Active Substance: LISINOPRIL
     Indication: Product used for unknown indication
     Dosage: TABLET, 10 MG (MILLIGRAM)
  5. FOLIC ACID [Concomitant]
     Active Substance: FOLIC ACID
     Indication: Product used for unknown indication
     Dosage: TABLET, 0,5 MG (MILLIGRAM)
  6. HYDROCHLOROTHIAZIDE [Concomitant]
     Active Substance: HYDROCHLOROTHIAZIDE
     Indication: Product used for unknown indication
     Dosage: TABLET, 25 MG (MILLIGRAM)
  7. ATORVASTATIN TABLET 10MG / Brand name not specified [Concomitant]
     Indication: Product used for unknown indication
     Dosage: TABLET, 10 MG (MILLIGRAM)?DOSAGE FORM: FILM COATED TABLET
  8. AMLODIPINE BESYLATE [Concomitant]
     Active Substance: AMLODIPINE BESYLATE
     Indication: Product used for unknown indication
     Dosage: TABLET, 5 MG (MILLIGRAM)
  9. MACROGOL/SALTS DRINK  / Brand name not specified [Concomitant]
     Indication: Product used for unknown indication
     Dosage: POWDER, IF REQUIRED 1DD1-2
  10. APIXABAN TABLET 5MG / Brand name not specified [Concomitant]
     Indication: Product used for unknown indication
     Dosage: TABLET 5MG 2DD2
  11. SUCRALFATE GRANULE 1G / Brand name not specified [Concomitant]
     Indication: Product used for unknown indication
     Dosage: SACHET (GRANULES), 1 G (GRAM), 4DD1
  12. METOCLOPRAMIDE [Concomitant]
     Active Substance: METOCLOPRAMIDE
     Indication: Product used for unknown indication
     Dosage: 10MG IF REQUIRED 1 TABLET
  13. PANTOPRAZOLE TABLET MSR 40MG / Brand name not specified [Concomitant]
     Indication: Product used for unknown indication
     Dosage: 40MG 2DD2?TABLET

REACTIONS (2)
  - Drug eruption [Recovering/Resolving]
  - Drug eruption [Recovering/Resolving]
